FAERS Safety Report 10165339 (Version 1)
Quarter: 2014Q2

REPORT INFORMATION
  Report Type: Spontaneous
  Country: US (occurrence: US)
  Receive Date: 20140510
  Receipt Date: 20140510
  Transmission Date: 20141212
  Serious: No
  Sender: FDA-Public Use
  Company Number: US-BRISTOL-MYERS SQUIBB COMPANY-20379640

PATIENT
  Age: 60 Year
  Sex: Female

DRUGS (7)
  1. BYDUREON [Suspect]
  2. GLYBURIDE [Concomitant]
  3. BENAZEPRIL HCL [Concomitant]
  4. AMLODIPINE [Concomitant]
  5. VENLAFAXINE HCL [Concomitant]
  6. LETROZOLE [Concomitant]
  7. OMEPRAZOLE [Concomitant]

REACTIONS (2)
  - Injection site extravasation [Unknown]
  - Drug dose omission [Unknown]
